FAERS Safety Report 7643933-5 (Version None)
Quarter: 2011Q3

REPORT INFORMATION
  Report Type: 
  Country: None (occurrence: None)
  Receive Date: 20110729
  Receipt Date: 20110718
  Transmission Date: 20111222
  Serious: Yes (Other)
  Sender: FDA-Public Use
  Company Number: AU-CELGENEUS-008-20785-11072106

PATIENT
  Sex: Male

DRUGS (2)
  1. THALIDOMIDE [Suspect]
     Indication: MULTIPLE MYELOMA
     Route: 048
     Dates: start: 20090501, end: 20100501
  2. THALIDOMIDE [Suspect]
     Route: 048
     Dates: start: 20110120

REACTIONS (1)
  - SQUAMOUS CELL CARCINOMA [None]
